FAERS Safety Report 7527579-5 (Version None)
Quarter: 2011Q2

REPORT INFORMATION
  Report Type: 
  Country: None (occurrence: None)
  Receive Date: 20110607
  Receipt Date: 20110601
  Transmission Date: 20111010
  Serious: No
  Sender: FDA-Public Use
  Company Number: US-PFIZER INC-2011118758

PATIENT
  Sex: Female

DRUGS (4)
  1. CLONIDINE [Suspect]
     Indication: BLOOD PRESSURE
     Dosage: UNK
  2. HYDROCHLOROTHIAZIDE [Suspect]
     Dosage: UNK
  3. DIOVAN [Concomitant]
  4. PROCARDIA [Suspect]
     Dosage: UNK

REACTIONS (4)
  - ALOPECIA [None]
  - OEDEMA PERIPHERAL [None]
  - DRUG INEFFECTIVE [None]
  - SOMNOLENCE [None]
